FAERS Safety Report 9478658 (Version 1)
Quarter: 2013Q3

REPORT INFORMATION
  Report Type: Spontaneous
  Country: US (occurrence: None)
  Receive Date: 20130822
  Receipt Date: 20130822
  Transmission Date: 20140515
  Serious: Yes (Other)
  Sender: FDA-Public Use
  Company Number: DAV-AE-ALP-13-21

PATIENT
  Age: 41 Year
  Sex: Male

DRUGS (1)
  1. ALPRAZOLAM [Suspect]
     Route: 048
     Dates: start: 201308, end: 20130815

REACTIONS (3)
  - Hypersensitivity [None]
  - Urticaria [None]
  - Hunger [None]
